FAERS Safety Report 7691404-2 (Version None)
Quarter: 2011Q3

REPORT INFORMATION
  Report Type: 
  Country: None (occurrence: None)
  Receive Date: 20110818
  Receipt Date: 20110808
  Transmission Date: 20111222
  Serious: Yes (Hospitalization)
  Sender: FDA-Public Use
  Company Number: PHHY2011US60922

PATIENT
  Sex: Female

DRUGS (3)
  1. SYNTHROID [Concomitant]
  2. GILENYA [Suspect]
     Indication: MULTIPLE SCLEROSIS
     Dosage: 0.5 MG, QD
     Route: 048
     Dates: start: 20110622
  3. FOSAMAX [Concomitant]

REACTIONS (6)
  - ABDOMINAL DISTENSION [None]
  - NAUSEA [None]
  - ASTHENIA [None]
  - INSOMNIA [None]
  - HEADACHE [None]
  - COUGH [None]
